FAERS Safety Report 6742438-3 (Version None)
Quarter: 2010Q2

REPORT INFORMATION
  Report Type: 
  Country: None (occurrence: None)
  Receive Date: 20100526
  Receipt Date: 20100517
  Transmission Date: 20101027
  Serious: Yes (Death, Hospitalization)
  Sender: FDA-Public Use
  Company Number: HU-WYE-H14153010

PATIENT
  Sex: Male
  Weight: 78 kg

DRUGS (6)
  1. TEMSIROLIMUS [Suspect]
     Indication: RENAL CELL CARCINOMA
     Route: 042
     Dates: start: 20091203, end: 20100310
  2. ONDANSETRON [Concomitant]
     Indication: NAUSEA
     Dosage: UNKNOWN
     Dates: start: 20100120
  3. HEPARIN SODIUM [Concomitant]
     Indication: THROMBOSIS PROPHYLAXIS
     Dosage: UNKNOWN
     Dates: start: 20091029
  4. ALPRAZOLAM [Concomitant]
     Indication: ANXIETY
     Dosage: UNKNOWN
  5. BEVACIZUMAB [Suspect]
     Indication: RENAL CELL CARCINOMA
     Route: 042
     Dates: start: 20091203, end: 20100310
  6. TRAMADOL HCL [Concomitant]
     Indication: PAIN
     Dosage: UNKNOWN
     Dates: start: 20091015

REACTIONS (16)
  - ANURIA [None]
  - ARTERIOSCLEROSIS [None]
  - BLOOD LACTATE DEHYDROGENASE INCREASED [None]
  - BLOOD POTASSIUM INCREASED [None]
  - CIRCULATORY COLLAPSE [None]
  - DEHYDRATION [None]
  - DUODENAL ULCER [None]
  - EMPHYSEMA [None]
  - GASTRIC ULCER [None]
  - HAEMOGLOBIN DECREASED [None]
  - METASTASES TO GASTROINTESTINAL TRACT [None]
  - METASTASES TO LUNG [None]
  - METASTASES TO LYMPH NODES [None]
  - PERITONITIS [None]
  - PULMONARY EMBOLISM [None]
  - THROMBOSIS [None]
